FAERS Safety Report 4454575-7 (Version None)
Quarter: 2004Q3

REPORT INFORMATION
  Report Type: 
  Country: None (occurrence: None)
  Receive Date: 20040921
  Receipt Date: 20040913
  Transmission Date: 20050211
  Serious: Yes (Other)
  Sender: FDA-Public Use
  Company Number: PHBS2004CA12160

PATIENT
  Age: 82 Year
  Sex: Female

DRUGS (7)
  1. MIACALCIN [Suspect]
     Dosage: 200 IU/DAY
     Route: 045
     Dates: start: 20040701
  2. METFORMIN HCL [Concomitant]
     Dosage: 500 MG, BID
  3. RANITIDINE [Concomitant]
  4. HYDROCHLOROTHIAZID [Concomitant]
  5. CELEBREX [Concomitant]
  6. METOPROLOL [Concomitant]
  7. INHIBACE [Concomitant]

REACTIONS (3)
  - ARRHYTHMIA [None]
  - BLOOD GLUCOSE INCREASED [None]
  - DIABETES MELLITUS INADEQUATE CONTROL [None]
